FAERS Safety Report 10935449 (Version 2)
Quarter: 2015Q2

REPORT INFORMATION
  Report Type: Spontaneous
  Country: JP (occurrence: JP)
  Receive Date: 20150320
  Receipt Date: 20150423
  Transmission Date: 20150821
  Serious: Yes (Congenital Anomaly, Other)
  Sender: FDA-Public Use
  Company Number: JP-JPN-JP2015GSK034008

PATIENT
  Age: 11 Year
  Sex: Male

DRUGS (16)
  1. CISPLATIN. [Suspect]
     Active Substance: CISPLATIN
     Dosage: 500 MG/M2, FOR 1 YEAR AT AGE OF 7 YEARS
  2. AZACITIDINE. [Suspect]
     Active Substance: AZACITIDINE
     Dosage: HIGHER DOSE FROM 4-9 CYCLES
  3. MELPHALAN [Suspect]
     Active Substance: MELPHALAN
     Indication: PROPHYLAXIS AGAINST GRAFT VERSUS HOST DISEASE
  4. IFOSFAMIDE. [Suspect]
     Active Substance: IFOSFAMIDE
     Indication: MEDULLOBLASTOMA
     Dosage: UNK UNK, CYC
     Route: 042
  5. CYTARABINE. [Suspect]
     Active Substance: CYTARABINE
     Indication: MEDULLOBLASTOMA
     Route: 065
  6. MELPHALAN [Suspect]
     Active Substance: MELPHALAN
     Indication: MEDULLOBLASTOMA
     Dosage: 6 MG/KG, FOR 6 MONTHS
  7. METHOTREXATE [Suspect]
     Active Substance: METHOTREXATE
     Indication: CHEMOTHERAPY
     Dosage: UNK UNK, CYC
  8. CISPLATIN. [Suspect]
     Active Substance: CISPLATIN
     Indication: MEDULLOBLASTOMA
     Dosage: 360 MG/M2, FOR 6 MONTHS AT AGE OF 1 YEAR
     Route: 042
  9. CYCLOPHOSPHAMIDE. [Suspect]
     Active Substance: CYCLOPHOSPHAMIDE
     Indication: MEDULLOBLASTOMA
     Dosage: UNK UNK, CYC
  10. DOXORUBICIN [Suspect]
     Active Substance: DOXORUBICIN
     Indication: MEDULLOBLASTOMA
     Dosage: 180 MG/M2, FOR 1YEAR AT AGE OF 7.
     Route: 042
  11. AZACITIDINE. [Suspect]
     Active Substance: AZACITIDINE
     Indication: MEDULLOBLASTOMA
     Dosage: UNK UNK, CYC
     Route: 042
  12. VINCRISTINE [Suspect]
     Active Substance: VINCRISTINE
     Indication: MEDULLOBLASTOMA
     Dosage: 15 MG/M2, FOR 6 MONTHS
     Route: 042
  13. THIOTEPA. [Suspect]
     Active Substance: THIOTEPA
     Indication: MEDULLOBLASTOMA
     Dosage: 26 MG/KG, FOR 6 MONTHS
     Route: 042
  14. ETOPOSIDE. [Suspect]
     Active Substance: ETOPOSIDE
     Indication: MEDULLOBLASTOMA
     Dosage: UNK UNK, CYC
  15. AZACITIDINE. [Suspect]
     Active Substance: AZACITIDINE
     Dosage: 3 CYCLES
  16. PIRARUBICIN [Suspect]
     Active Substance: PIRARUBICIN
     Indication: MEDULLOBLASTOMA
     Dosage: 585 MG/M2, FOR 1 YEAR AT AGE OF 7.
     Route: 042

REACTIONS (11)
  - Haemorrhagic diathesis [Recovered/Resolved]
  - Deafness [Unknown]
  - Bone marrow failure [Unknown]
  - Trisomy 8 [Recovered/Resolved]
  - Osteosarcoma [Recovered/Resolved]
  - Myelodysplastic syndrome [Unknown]
  - Cytogenetic abnormality [Recovered/Resolved]
  - Acute graft versus host disease [Unknown]
  - Pancytopenia [Recovered/Resolved]
  - Gene mutation [Recovered/Resolved]
  - Neutropenia [Unknown]
